FAERS Safety Report 12720991 (Version 1)
Quarter: 2016Q3

REPORT INFORMATION
  Report Type: Spontaneous
  Country: US (occurrence: US)
  Receive Date: 20160907
  Receipt Date: 20160907
  Transmission Date: 20161109
  Serious: No
  Sender: FDA-Public Use
  Company Number: US-WATSON-2016-14113

PATIENT
  Age: 90 Year
  Sex: Male

DRUGS (1)
  1. ALENDRONATE SODIUM (WATSON LABORATORIES) [Suspect]
     Active Substance: ALENDRONATE SODIUM
     Indication: BONE LOSS
     Dosage: UNK, UNKNOWN
     Route: 048

REACTIONS (2)
  - Joint swelling [Not Recovered/Not Resolved]
  - Constipation [Not Recovered/Not Resolved]
